FAERS Safety Report 10229602 (Version 1)
Quarter: 2014Q2

REPORT INFORMATION
  Report Type: Spontaneous
  Country: US (occurrence: None)
  Receive Date: 20140610
  Receipt Date: 20140610
  Transmission Date: 20141212
  Serious: Yes (Other)
  Sender: FDA-Public Use
  Company Number: None

PATIENT
  Age: 80 Year
  Sex: Female

DRUGS (12)
  1. ATORVASTATIN [Suspect]
     Indication: BLOOD CHOLESTEROL INCREASED
     Dates: start: 20140122, end: 20140129
  2. WELCHOL [Concomitant]
  3. AMLODIPINE [Concomitant]
  4. LEVOTHYROXINE [Concomitant]
  5. BENAZEPRIL [Concomitant]
  6. VITAMINS [Concomitant]
  7. MELATONIN [Concomitant]
  8. CALCIUM PILL [Concomitant]
  9. GLUCOSAMINE [Concomitant]
  10. CHONDROITIN [Concomitant]
  11. MSM [Concomitant]
  12. GINKO BILOBA [Concomitant]

REACTIONS (1)
  - Amnesia [None]
